FAERS Safety Report 8174914-3 (Version None)
Quarter: 2012Q1

REPORT INFORMATION
  Report Type: 
  Country: None (occurrence: None)
  Receive Date: 20120229
  Receipt Date: 20110718
  Transmission Date: 20120608
  Serious: No
  Sender: FDA-Public Use
  Company Number: US-GLAXOSMITHKLINE-A0937069A

PATIENT
  Age: 46 Year
  Sex: Female

DRUGS (9)
  1. TOPAMAX [Concomitant]
  2. SIMVASTATIN [Concomitant]
  3. FLOVENT [Concomitant]
  4. VALACYCLOVIR [Suspect]
     Indication: GENITAL HERPES
     Dosage: 500MG PER DAY
     Route: 048
     Dates: start: 20110606
  5. PROVENTIL [Concomitant]
  6. AMBIEN [Concomitant]
  7. LAMICTAL [Concomitant]
  8. PROMETHAZINE [Concomitant]
  9. ASTHMA MEDICATION [Concomitant]

REACTIONS (2)
  - HERPES VIRUS INFECTION [None]
  - DRUG INEFFECTIVE [None]
